FAERS Safety Report 4291225-7 (Version None)
Quarter: 2004Q1

REPORT INFORMATION
  Report Type: 
  Country: None (occurrence: None)
  Receive Date: 20040211
  Receipt Date: 20031117
  Transmission Date: 20041129
  Serious: No
  Sender: FDA-Public Use
  Company Number: US-GLAXOSMITHKLINE-A0439973A

PATIENT
  Age: 43 Year
  Sex: Female

DRUGS (8)
  1. PAXIL [Suspect]
     Indication: POST-TRAUMATIC STRESS DISORDER
     Dosage: 5MG PER DAY
     Route: 048
     Dates: start: 20030101
  2. MEDROL [Concomitant]
  3. FLORINEF [Concomitant]
  4. LEVOXYL [Concomitant]
  5. ATENOLOL [Concomitant]
  6. POTASSIUM [Concomitant]
  7. DHEA [Concomitant]
  8. PRILOSEC [Concomitant]

REACTIONS (1)
  - NAUSEA [None]
